FAERS Safety Report 6479500-9 (Version None)
Quarter: 2009Q4

REPORT INFORMATION
  Report Type: 
  Country: None (occurrence: None)
  Receive Date: 20091207
  Receipt Date: 20091207
  Transmission Date: 20100525
  Serious: Yes (Disabling)
  Sender: FDA-Public Use
  Company Number: None

PATIENT
  Age: 27 Year
  Sex: Male

DRUGS (1)
  1. ACTIVASE [Suspect]
     Indication: SICKLE CELL ANAEMIA
     Dosage: PRE/POST TREATMENT IV DRIP
     Route: 041
     Dates: start: 20091125, end: 20091125

REACTIONS (2)
  - DYSPNOEA [None]
  - FLUSHING [None]
